FAERS Safety Report 8692200 (Version 2)
Quarter: 2012Q4

REPORT INFORMATION
  Report Type: 
  Country: DE (occurrence: DE)
  Receive Date: 20120730
  Receipt Date: 20120906
  Transmission Date: 20130627
  Serious: Yes (Other)
  Sender: FDA-Public Use
  Company Number: DE-SHIRE-ALL1-2012-03487

PATIENT
  Age: 2 Year
  Sex: Male
  Weight: 11.9 kg

DRUGS (3)
  1. VPRIV [Suspect]
     Indication: GAUCHER^S DISEASE
     Dosage: UNK, 1x/2wks
     Route: 041
     Dates: start: 20120315
  2. VPRIV [Suspect]
     Dosage: UNK, 1x/2wks
     Route: 041
     Dates: start: 20120315
  3. VPRIV [Suspect]
     Dosage: UNK, 1x/2wks
     Route: 041
     Dates: start: 20120315

REACTIONS (2)
  - Type 1 diabetes mellitus [Not Recovered/Not Resolved]
  - Coeliac disease [Not Recovered/Not Resolved]
